FAERS Safety Report 21165455 (Version 1)
Quarter: 2022Q3

REPORT INFORMATION
  Report Type: Spontaneous
  Country: US (occurrence: None)
  Receive Date: 20220803
  Receipt Date: 20220803
  Transmission Date: 20221026
  Serious: Yes (Hospitalization)
  Sender: FDA-Public Use
  Company Number: US-ROCHE-3152151

PATIENT
  Sex: Female

DRUGS (1)
  1. XELODA [Suspect]
     Active Substance: CAPECITABINE
     Indication: Colon cancer
     Dosage: 3 TABLETS BY MOUTH TWICE A DAY FOR 2 WEEKS ON AND 1 WEEK OFF
     Route: 048
     Dates: start: 202207

REACTIONS (1)
  - Weight fluctuation [Unknown]
